FAERS Safety Report 6422488-7 (Version None)
Quarter: 2009Q4

REPORT INFORMATION
  Report Type: 
  Country: None (occurrence: None)
  Receive Date: 20091030
  Receipt Date: 20091020
  Transmission Date: 20100525
  Serious: Yes (Hospitalization, Other)
  Sender: FDA-Public Use
  Company Number: US-MERCK-0804USA02859

PATIENT
  Age: 50 Year
  Sex: Female
  Weight: 88 kg

DRUGS (2)
  1. FOSAMAX [Suspect]
     Indication: OSTEOPOROSIS
     Route: 048
     Dates: start: 20011001, end: 20060406
  2. BONIVA [Suspect]
     Indication: OSTEOPOROSIS
     Route: 065
     Dates: start: 20060501, end: 20071101

REACTIONS (59)
  - ABDOMINAL DISCOMFORT [None]
  - ABDOMINAL WALL ABSCESS [None]
  - ACROCHORDON [None]
  - ALVEOLAR OSTEITIS [None]
  - ANAEMIA [None]
  - ANXIETY [None]
  - APHTHOUS STOMATITIS [None]
  - ARTHRITIS BACTERIAL [None]
  - ARTHROPATHY [None]
  - ASTHMA [None]
  - CALCULUS URINARY [None]
  - CELLULITIS [None]
  - COUGH [None]
  - DEAFNESS [None]
  - DECREASED IMMUNE RESPONSIVENESS [None]
  - DENTAL CARIES [None]
  - DENTAL FISTULA [None]
  - DEPRESSION [None]
  - DIABETIC GASTROPARESIS [None]
  - DIABETIC NEUROPATHY [None]
  - DIARRHOEA [None]
  - EXOSTOSIS [None]
  - EXTRADURAL ABSCESS [None]
  - FALL [None]
  - FIBROMYALGIA [None]
  - FOOT FRACTURE [None]
  - GASTRIC DISORDER [None]
  - GASTROOESOPHAGEAL REFLUX DISEASE [None]
  - GLYCOSYLATED HAEMOGLOBIN INCREASED [None]
  - HAEMATOCHEZIA [None]
  - HORMONE LEVEL ABNORMAL [None]
  - HYPERCHOLESTEROLAEMIA [None]
  - HYPERTENSION [None]
  - HYPERTENSIVE HEART DISEASE [None]
  - IMPAIRED HEALING [None]
  - INFLAMMATION [None]
  - INTERVERTEBRAL DISC PROTRUSION [None]
  - NEURALGIA [None]
  - ORAL DISORDER [None]
  - ORAL HERPES [None]
  - ORAL INFECTION [None]
  - OSTEOARTHRITIS [None]
  - OSTEONECROSIS [None]
  - PAIN [None]
  - PERIODONTITIS [None]
  - PHARYNGITIS [None]
  - PNEUMONIA [None]
  - RIB FRACTURE [None]
  - SEPSIS [None]
  - SINUS DISORDER [None]
  - SINUSITIS [None]
  - SPINAL COLUMN STENOSIS [None]
  - SPINAL DISORDER [None]
  - STAPHYLOCOCCAL INFECTION [None]
  - SYNOVIAL CYST [None]
  - TOOTH ABSCESS [None]
  - TOOTH DISORDER [None]
  - TYPE 2 DIABETES MELLITUS [None]
  - URINARY TRACT INFECTION [None]
